FAERS Safety Report 13703445 (Version 2)
Quarter: 2017Q3

REPORT INFORMATION
  Report Type: Spontaneous
  Country: CH (occurrence: CH)
  Receive Date: 20170629
  Receipt Date: 20170706
  Transmission Date: 20171127
  Serious: Yes (Hospitalization, Other)
  Sender: FDA-Public Use
  Company Number: CH-TEVA-781254ROM

PATIENT
  Age: 55 Year
  Sex: Female

DRUGS (15)
  1. TORASEMIDE [Suspect]
     Active Substance: TORSEMIDE
     Indication: DIURETIC THERAPY
     Dosage: INITIAL DOSE: 5MG/DAY
     Route: 065
  2. DIAZEPAM. [Concomitant]
     Active Substance: DIAZEPAM
     Dosage: INITIAL DOSE: 25MG/DAY; LATER DOSE INCREASED TO 40MG/DAY
     Route: 065
  3. ARIPIPRAZOLE. [Concomitant]
     Active Substance: ARIPIPRAZOLE
     Dosage: 10 MG/DAY
     Route: 065
  4. MIRTAZAPINE. [Concomitant]
     Active Substance: MIRTAZAPINE
     Dosage: 30 MG/DAY
     Route: 065
  5. DIAZEPAM. [Concomitant]
     Active Substance: DIAZEPAM
     Dosage: 40 MG/DAY
     Route: 065
  6. PANTOPRAZOLE [Concomitant]
     Active Substance: PANTOPRAZOLE
     Dosage: 40 MG/DAY
     Route: 065
  7. METHADONE [Suspect]
     Active Substance: METHADONE HYDROCHLORIDE
     Dosage: INITIATED AT THE AGE 33Y AT UNKNOWN DOSE
     Route: 065
  8. MORPHINE [Suspect]
     Active Substance: MORPHINE
     Dosage: INITIAL DOSE: 1800MG/DAY
     Route: 048
  9. MORPHINE [Suspect]
     Active Substance: MORPHINE
     Dosage: 2120MG/DAY
     Route: 048
  10. AGOMELATINE [Concomitant]
     Active Substance: AGOMELATINE
     Dosage: 25 MG/DAY
     Route: 065
  11. ZOLPIDEM [Concomitant]
     Active Substance: ZOLPIDEM\ZOLPIDEM TARTRATE
     Dosage: 10 MG/DAY
     Route: 065
  12. TORASEMIDE [Suspect]
     Active Substance: TORSEMIDE
     Dosage: 10MG/DAY
     Route: 065
  13. METHADONE [Suspect]
     Active Substance: METHADONE HYDROCHLORIDE
     Dosage: 180MG/DAY
     Route: 065
  14. RAMIPRIL. [Concomitant]
     Active Substance: RAMIPRIL
     Dosage: 2.5 MG/DAY
     Route: 065
  15. MAGNESIUM ASPARTATE [Concomitant]
     Active Substance: MAGNESIUM ASPARTATE
     Dosage: 10 MMOL/DAY
     Route: 065

REACTIONS (3)
  - Electrocardiogram QT prolonged [Recovering/Resolving]
  - Hypokalaemia [Recovered/Resolved]
  - Acute psychosis [Recovering/Resolving]
